FAERS Safety Report 6054303-8 (Version None)
Quarter: 2009Q1

REPORT INFORMATION
  Report Type: 
  Country: None (occurrence: None)
  Receive Date: 20090127
  Receipt Date: 20090116
  Transmission Date: 20090719
  Serious: Yes (Hospitalization)
  Sender: FDA-Public Use
  Company Number: PHHY2008JP29111

PATIENT
  Sex: Male

DRUGS (15)
  1. ICL670A ICL+DISTAB [Suspect]
     Indication: IRON OVERLOAD
     Dosage: 500 MG/DAY
     Route: 048
     Dates: start: 20081113, end: 20081115
  2. ICL670A ICL+DISTAB [Suspect]
     Indication: APLASTIC ANAEMIA
  3. CONTOMIN [Concomitant]
     Dosage: 20 MG/DAY
     Route: 048
     Dates: start: 20051201, end: 20081115
  4. GLAKAY [Concomitant]
     Dosage: 3 DF/DAY
     Route: 048
     Dates: start: 20051201
  5. PRIMOBOLAN [Concomitant]
     Dosage: 3 DF/DAY
     Route: 048
     Dates: start: 20051201
  6. PARIET [Concomitant]
     Dosage: 1 DF/DAY
     Route: 048
     Dates: start: 20051201
  7. RHYTHMY [Concomitant]
     Dosage: 1 DF/DAY
     Route: 048
     Dates: start: 20051201
  8. NEORAL [Concomitant]
     Dosage: 4 DF/DAY
     Route: 048
     Dates: start: 20051201
  9. LASIX [Concomitant]
     Dosage: 0.5 DF
     Route: 048
     Dates: start: 20051201
  10. LASIX [Concomitant]
     Dosage: 1DF/DAY
     Route: 048
  11. OPALMON [Concomitant]
     Dosage: 3 DF/DAY
     Route: 048
     Dates: start: 20051201
  12. PENTAZOCINE LACTATE [Concomitant]
     Dosage: 1 DF/DAY
     Route: 048
     Dates: start: 20051201, end: 20081115
  13. KETOPROFEN [Concomitant]
     Dosage: UNK
     Route: 061
     Dates: start: 20081030, end: 20081112
  14. NIZORAL [Concomitant]
     Dosage: UNK
     Route: 061
     Dates: start: 20081030, end: 20081112
  15. BLOOD TRANSFUSION [Concomitant]
     Dosage: UNK
     Dates: start: 20070525

REACTIONS (4)
  - ASTHENIA [None]
  - FALL [None]
  - PLATELET COUNT DECREASED [None]
  - SOMNOLENCE [None]
